FAERS Safety Report 21261050 (Version 1)
Quarter: 2022Q3

REPORT INFORMATION
  Report Type: Spontaneous
  Country: US (occurrence: US)
  Receive Date: 20220826
  Receipt Date: 20220826
  Transmission Date: 20221027
  Serious: No
  Sender: FDA-Public Use
  Company Number: US-009507513-2208USA007361

PATIENT

DRUGS (2)
  1. KEYTRUDA [Suspect]
     Active Substance: PEMBROLIZUMAB
     Indication: Osteosarcoma
  2. PAZOPANIB [Concomitant]
     Active Substance: PAZOPANIB
     Indication: Osteosarcoma

REACTIONS (1)
  - Product use in unapproved indication [Unknown]
